FAERS Safety Report 8990075 (Version 1)
Quarter: 2012Q4

REPORT INFORMATION
  Report Type: 
  Country: IT (occurrence: FR)
  Receive Date: 20121228
  Receipt Date: 20121228
  Transmission Date: 20130627
  Serious: Yes (Hospitalization)
  Sender: FDA-Public Use
  Company Number: FR-FRI-1000041211

PATIENT
  Sex: Male

DRUGS (5)
  1. NEBIVOLOL [Suspect]
     Dosage: 5 mg
     Route: 048
     Dates: end: 20120618
  2. PLAVIX [Concomitant]
     Dosage: 75 mg
     Route: 048
  3. PRAVASTATIN [Concomitant]
     Dosage: 20 mg
     Route: 048
  4. FUROSEMIDE [Concomitant]
     Dosage: 20 mg
  5. JANUVIA [Concomitant]
     Dosage: 100 mg

REACTIONS (2)
  - Bradyarrhythmia [Unknown]
  - Atrial fibrillation [Unknown]
